FAERS Safety Report 19694169 (Version 1)
Quarter: 2021Q3

REPORT INFORMATION
  Report Type: Spontaneous
  Country: BR (occurrence: BR)
  Receive Date: 20210813
  Receipt Date: 20210813
  Transmission Date: 20211014
  Serious: Yes (Other)
  Sender: FDA-Public Use
  Company Number: BR-NOVOPROD-836696

PATIENT
  Age: 41 Year
  Sex: Male
  Weight: 82 kg

DRUGS (10)
  1. METFORMIN [Concomitant]
     Active Substance: METFORMIN HYDROCHLORIDE
     Dosage: 500 2+2
  2. ASA [Concomitant]
     Active Substance: ASPIRIN
     Dosage: 100 MG, QD
  3. INSULIN GLARGINE [Concomitant]
     Active Substance: INSULIN GLARGINE
     Dosage: 20 IU
  4. CIPROFIBRATE [Concomitant]
     Active Substance: CIPROFIBRATE
     Dosage: 100 MG
  5. SEMAGLUTIDE UNKNOWN [Suspect]
     Active Substance: SEMAGLUTIDE
     Dosage: 0.5MG
     Route: 065
  6. DIOVAN AMLO [Concomitant]
     Active Substance: AMLODIPINE\VALSARTAN
     Dosage: 320/5MG DAY
  7. PIOGLITAZONE. [Concomitant]
     Active Substance: PIOGLITAZONE
     Dosage: 15 MG, QD
  8. SEMAGLUTIDE UNKNOWN [Suspect]
     Active Substance: SEMAGLUTIDE
     Indication: PRODUCT USED FOR UNKNOWN INDICATION
     Dosage: 0.25 MG
     Route: 065
  9. DAPAGLIFLOZIN. [Concomitant]
     Active Substance: DAPAGLIFLOZIN
     Dosage: 10 MG
  10. ATORVASTATIN [Concomitant]
     Active Substance: ATORVASTATIN
     Dosage: 20 MG, QD

REACTIONS (4)
  - Left atrial enlargement [Unknown]
  - Hyperhidrosis [Unknown]
  - Diastolic dysfunction [Unknown]
  - Fatigue [Unknown]
